FAERS Safety Report 5326774-3 (Version None)
Quarter: 2007Q2

REPORT INFORMATION
  Report Type: 
  Country: None (occurrence: None)
  Receive Date: 20070516
  Receipt Date: 20070504
  Transmission Date: 20071010
  Serious: Yes (Hospitalization)
  Sender: FDA-Public Use
  Company Number: GB-PFIZER INC-2007034948

PATIENT
  Sex: Male
  Weight: 83.6 kg

DRUGS (6)
  1. SU-011,248 [Suspect]
     Indication: METASTATIC RENAL CELL CARCINOMA
     Route: 048
  2. PARACETAMOL [Concomitant]
     Indication: HEADACHE
     Route: 048
  3. CODEINE LINCTUS [Concomitant]
     Indication: COUGH
     Route: 048
  4. SUDAFED 12 HOUR [Concomitant]
     Indication: COUGH
     Route: 048
  5. SALBUTAMOL [Concomitant]
     Indication: COUGH
     Route: 055
  6. LEVOTHYROXINE SODIUM [Concomitant]
     Indication: HYPOTHYROIDISM

REACTIONS (1)
  - PLEURAL EFFUSION [None]
